FAERS Safety Report 13703679 (Version 1)
Quarter: 2017Q2

REPORT INFORMATION
  Report Type: Spontaneous
  Country: US (occurrence: US)
  Receive Date: 20170629
  Receipt Date: 20170629
  Transmission Date: 20170830
  Serious: No
  Sender: FDA-Public Use
  Company Number: US-PRESTIGE BRANDS -2022752

PATIENT
  Age: 67 Year
  Sex: Female

DRUGS (1)
  1. NIX [Suspect]
     Active Substance: PERMETHRIN
     Indication: LICE INFESTATION
     Route: 061
     Dates: start: 20170302, end: 20170309

REACTIONS (7)
  - Crying [None]
  - Drug ineffective [Unknown]
  - Alopecia [Unknown]
  - Skin ulcer [Unknown]
  - Hair colour changes [Unknown]
  - Pruritus [Unknown]
  - Skin haemorrhage [Unknown]

NARRATIVE: CASE EVENT DATE: 20170309
